FAERS Safety Report 7714878-7 (Version None)
Quarter: 2011Q3

REPORT INFORMATION
  Report Type: 
  Country: None (occurrence: None)
  Receive Date: 20110829
  Receipt Date: 20110818
  Transmission Date: 20111222
  Serious: Yes (Hospitalization, Other)
  Sender: FDA-Public Use
  Company Number: FR-SANOFI-AVENTIS-2011SA052747

PATIENT
  Age: 24 Year
  Sex: Male

DRUGS (8)
  1. ESOMEPRAZOLE MAGNESIUM [Suspect]
     Route: 048
     Dates: start: 20110610, end: 20110704
  2. LOVENOX [Suspect]
     Route: 058
     Dates: start: 20110609, end: 20110704
  3. MESTINON [Suspect]
     Route: 048
     Dates: start: 20110620, end: 20110704
  4. FORLAX [Concomitant]
     Indication: CONSTIPATION
     Route: 048
     Dates: start: 20110617
  5. CEFTRIAXONE [Suspect]
     Indication: MYELITIS
     Route: 042
     Dates: start: 20110609, end: 20110630
  6. CEFTRIAXONE [Suspect]
     Route: 042
     Dates: start: 20110701, end: 20110704
  7. PREDNISONE [Concomitant]
     Indication: MYELITIS
     Route: 048
     Dates: start: 20110617
  8. ALFUZOSIN HCL [Concomitant]
     Indication: URINARY RETENTION
     Route: 048
     Dates: start: 20110617

REACTIONS (1)
  - AGRANULOCYTOSIS [None]
